FAERS Safety Report 24108950 (Version 2)
Quarter: 2024Q3

REPORT INFORMATION
  Report Type: Report from Study
  Country: CN (occurrence: CN)
  Receive Date: 20240718
  Receipt Date: 20240904
  Transmission Date: 20241016
  Serious: Yes (Death, Hospitalization)
  Sender: EISAI
  Company Number: CN-Eisai-EC-2024-169898

PATIENT
  Age: 70 Year
  Sex: Female

DRUGS (2)
  1. LENVATINIB [Suspect]
     Active Substance: LENVATINIB
     Indication: Non-small cell lung cancer
     Route: 048
     Dates: start: 20240324, end: 20240709
  2. PEMBROLIZUMAB [Suspect]
     Active Substance: PEMBROLIZUMAB
     Indication: Non-small cell lung cancer
     Route: 042
     Dates: start: 20240324, end: 20240625

REACTIONS (3)
  - Death [Fatal]
  - Dysphonia [Unknown]
  - Dysphagia [Unknown]

NARRATIVE: CASE EVENT DATE: 20240709
